FAERS Safety Report 8166679-6 (Version None)
Quarter: 2012Q1

REPORT INFORMATION
  Report Type: 
  Country: None (occurrence: None)
  Receive Date: 20120227
  Receipt Date: 20120224
  Transmission Date: 20120608
  Serious: Yes (Hospitalization, Other)
  Sender: FDA-Public Use
  Company Number: KR-BAYER-2011-049852

PATIENT
  Age: 62 Year
  Sex: Male
  Weight: 67 kg

DRUGS (114)
  1. MEK INHIBITOR (DIHYDROXYPROP-DIFLU-METHOXYPHEN-CYCLOPROPA-SULFAMI) [Suspect]
     Dosage: 80 MG, QD(50 MG AM 30 MG PM)
     Route: 048
     Dates: start: 20110422, end: 20110422
  2. MEK INHIBITOR (DIHYDROXYPROP-DIFLU-METHOXYPHEN-CYCLOPROPA-SULFAMI) [Suspect]
     Dosage: 30 MG, QD(PM)
     Route: 048
     Dates: start: 20110512, end: 20110512
  3. MEK INHIBITOR (DIHYDROXYPROP-DIFLU-METHOXYPHEN-CYCLOPROPA-SULFAMI) [Suspect]
     Dosage: 20 MG, QD (PM)
     Dates: start: 20110704, end: 20110704
  4. SORAFENIB (RAF KINASE INHIBITOR) [Suspect]
     Dosage: 400 MG, QD (PM)
     Route: 048
     Dates: start: 20110217, end: 20110217
  5. METOCLOPRAMIDE [Concomitant]
     Dosage: 2.5 MG, TID
     Route: 048
     Dates: start: 20110318, end: 20110417
  6. HEXAMIDINE [Concomitant]
     Dosage: 100 ML, QD
     Dates: start: 20110422, end: 20110430
  7. MEGACE [Concomitant]
     Dosage: 10 ML, QD
     Route: 048
     Dates: start: 20110401, end: 20110407
  8. MEGACE [Concomitant]
     Dosage: 10 ML, QD
     Route: 048
     Dates: start: 20110804
  9. CONTRAST MEDIA [Concomitant]
     Dosage: 20 ML, QD
     Route: 042
     Dates: start: 20110217, end: 20110217
  10. CONTRAST MEDIA [Concomitant]
     Dosage: 10 ML, QD
     Route: 042
     Dates: start: 20110804, end: 20110804
  11. BACTROBAN [Concomitant]
     Dosage: 10 G, PRN
     Route: 061
     Dates: start: 20110404, end: 20110422
  12. LIPID EMULSION [Concomitant]
     Dosage: 250 ML, QD
     Route: 042
     Dates: start: 20110318, end: 20110318
  13. MEK INHIBITOR (DIHYDROXYPROP-DIFLU-METHOXYPHEN-CYCLOPROPA-SULFAMI) [Suspect]
     Dosage: 50 MG, BID
     Route: 048
     Dates: start: 20110115, end: 20110120
  14. SORAFENIB (RAF KINASE INHIBITOR) [Suspect]
     Dosage: 400 MG, QD (PM)
     Route: 048
     Dates: start: 20110207, end: 20110207
  15. SORAFENIB (RAF KINASE INHIBITOR) [Suspect]
     Dosage: 600 MG, QD(200 MG AM/ 400 MG PM)
     Route: 048
     Dates: start: 20110319, end: 20110331
  16. ANALGESICS [Concomitant]
     Indication: ARTHRALGIA
     Dosage: 5 MG, PRN
     Route: 048
     Dates: start: 20100527, end: 20110309
  17. MYDRIN P [Concomitant]
     Indication: MYDRIASIS
     Dosage: 10 ML, QD
     Route: 061
     Dates: start: 20101224, end: 20101224
  18. METOCLOPRAMIDE [Concomitant]
     Indication: VOMITING
     Dosage: 2.5 MG, TID
     Route: 048
     Dates: start: 20110117, end: 20110121
  19. HEXAMIDINE [Concomitant]
     Dosage: 100 ML, PRN
     Route: 048
     Dates: start: 20110207, end: 20110218
  20. HEXAMIDINE [Concomitant]
     Dosage: 100 ML, BID
     Dates: start: 20110602, end: 20110608
  21. HEXAMIDINE [Concomitant]
     Dosage: 100 ML, BID
     Dates: start: 20110624, end: 20110703
  22. TRIAMCINOLONE [Concomitant]
     Dosage: 10 G, PRN
     Route: 061
     Dates: start: 20110422
  23. LACTULOSE [Concomitant]
     Indication: CONSTIPATION PROPHYLAXIS
     Dosage: 20 ML, TID
     Route: 048
     Dates: start: 20110218, end: 20110310
  24. HEPATAMINE [Concomitant]
     Indication: PARENTERAL NUTRITION
     Dosage: 500 MG, QD
     Route: 042
     Dates: start: 20110318, end: 20110318
  25. ULTRAVIST 150 [Concomitant]
     Dosage: 100 ML, QD
     Route: 042
     Dates: start: 20110803, end: 20110803
  26. HUMALOG [Concomitant]
     Indication: DIABETES MELLITUS
     Dosage: UNK
     Route: 058
     Dates: start: 20110104, end: 20110912
  27. MEK INHIBITOR (DIHYDROXYPROP-DIFLU-METHOXYPHEN-CYCLOPROPA-SULFAMI) [Suspect]
     Dosage: 50 MG, BID
     Route: 048
     Dates: start: 20110402, end: 20110403
  28. MEK INHIBITOR (DIHYDROXYPROP-DIFLU-METHOXYPHEN-CYCLOPROPA-SULFAMI) [Suspect]
     Dosage: 20 MG, BID (20 MG AM / 20 MG PM)
     Route: 048
     Dates: start: 20110705, end: 20110711
  29. SORAFENIB (RAF KINASE INHIBITOR) [Suspect]
     Dosage: 600 MG, QD(200 MG AM/400 MG PM)
     Route: 048
     Dates: start: 20110208, end: 20110216
  30. SORAFENIB (RAF KINASE INHIBITOR) [Suspect]
     Dosage: 400 MG, QD(PM)
     Route: 048
     Dates: start: 20110318, end: 20110318
  31. SORAFENIB (RAF KINASE INHIBITOR) [Suspect]
     Dosage: 400 MG, QD (PM)
     Route: 048
     Dates: start: 20110602, end: 20110602
  32. SORAFENIB (RAF KINASE INHIBITOR) [Suspect]
     Dosage: 400 MG, QD (PM)
     Route: 048
     Dates: start: 20110704, end: 20110704
  33. URSODIOL [Concomitant]
     Indication: HEPATITIS B
     Dosage: 200 MG, BID
     Route: 048
     Dates: start: 20100527
  34. THIAMINE HCL [Concomitant]
     Indication: HEPATITIS B
     Dosage: 20 MG, BID
     Route: 048
     Dates: start: 20100527
  35. MYDRIN P [Concomitant]
     Dosage: 1 ML, QD
     Route: 061
     Dates: start: 20110607, end: 20110607
  36. HEXAMIDINE [Concomitant]
     Dosage: 100 ML, QD
     Dates: start: 20110512, end: 20110524
  37. MEGACE [Concomitant]
     Indication: PROPHYLAXIS
     Dosage: 10 ML, QD
     Route: 048
     Dates: start: 20101213, end: 20101219
  38. OPTIRAY 160 [Concomitant]
     Indication: COMPUTERISED TOMOGRAM
     Dosage: 100 ML, QD
     Route: 042
     Dates: start: 20101228, end: 20101228
  39. MEK INHIBITOR (DIHYDROXYPROP-DIFLU-METHOXYPHEN-CYCLOPROPA-SULFAMI) [Suspect]
     Dosage: 50 MG, BID
     Route: 048
     Dates: start: 20110129, end: 20110206
  40. MEK INHIBITOR (DIHYDROXYPROP-DIFLU-METHOXYPHEN-CYCLOPROPA-SULFAMI) [Suspect]
     Dosage: 50 MG, BID
     Route: 048
     Dates: start: 20110319, end: 20110331
  41. MEK INHIBITOR (DIHYDROXYPROP-DIFLU-METHOXYPHEN-CYCLOPROPA-SULFAMI) [Suspect]
     Dosage: 20 MG, BID (20 MG AM / 20 MG PM)
     Route: 048
     Dates: start: 20110712, end: 20110803
  42. MEK INHIBITOR (DIHYDROXYPROP-DIFLU-METHOXYPHEN-CYCLOPROPA-SULFAMI) [Suspect]
     Dosage: 20 MG, BID (20 MG AM / 20 MG PM)
     Route: 048
     Dates: start: 20110804
  43. SORAFENIB (RAF KINASE INHIBITOR) [Suspect]
     Dosage: 400 MG, QD (PM)
     Route: 048
     Dates: start: 20110404, end: 20110404
  44. SORAFENIB (RAF KINASE INHIBITOR) [Suspect]
     Dosage: 600 MG, QD(200 MG AM/400 MG PM)
     Route: 048
     Dates: start: 20110420, end: 20110421
  45. SORAFENIB (RAF KINASE INHIBITOR) [Suspect]
     Dosage: 400 MG, QD (AM)
     Route: 048
     Dates: start: 20110603, end: 20110606
  46. SORAFENIB (RAF KINASE INHIBITOR) [Suspect]
     Dosage: 600 MG, QD (200 MG AM / 400 MG PM)
     Route: 048
     Dates: start: 20110712, end: 20110803
  47. HEXAMIDINE [Concomitant]
     Indication: STOMATITIS
     Dosage: 100 ML, PRN
     Dates: start: 20110117, end: 20110121
  48. HEXAMIDINE [Concomitant]
     Dosage: 100 ML, PRN
     Dates: start: 20110310, end: 20110401
  49. GASMOTIN [Concomitant]
     Indication: DECREASED APPETITE
     Dosage: 5 MG, TID
     Route: 048
     Dates: start: 20110310
  50. LACTICARE HC [Concomitant]
     Indication: URTICARIA
     Dosage: 118 ML, PRN
     Route: 061
     Dates: start: 20110624, end: 20110801
  51. DEXTROSE [Concomitant]
     Dosage: 500 ML, QD
     Route: 042
     Dates: start: 20110829, end: 20110829
  52. MEK INHIBITOR (DIHYDROXYPROP-DIFLU-METHOXYPHEN-CYCLOPROPA-SULFAMI) [Suspect]
     Indication: HEPATIC NEOPLASM MALIGNANT
     Dosage: 50 MG, BID
     Route: 048
     Dates: start: 20110107, end: 20110113
  53. MEK INHIBITOR (DIHYDROXYPROP-DIFLU-METHOXYPHEN-CYCLOPROPA-SULFAMI) [Suspect]
     Dosage: 50 MG, BID
     Route: 048
     Dates: start: 20110208, end: 20110216
  54. MEK INHIBITOR (DIHYDROXYPROP-DIFLU-METHOXYPHEN-CYCLOPROPA-SULFAMI) [Suspect]
     Dosage: 50 MG, QD
     Route: 048
     Dates: start: 20110404, end: 20110404
  55. MEK INHIBITOR (DIHYDROXYPROP-DIFLU-METHOXYPHEN-CYCLOPROPA-SULFAMI) [Suspect]
     Dosage: 30 MG, QD (PM)
     Route: 048
     Dates: start: 20110602, end: 20110602
  56. SORAFENIB (RAF KINASE INHIBITOR) [Suspect]
     Dosage: 400 MG, QD (PM)
     Route: 048
     Dates: start: 20110128, end: 20110128
  57. SORAFENIB (RAF KINASE INHIBITOR) [Suspect]
     Dosage: 600 MG, QD(200MG AM/ 400MG PM)
     Route: 048
     Dates: start: 20110128, end: 20110206
  58. SORAFENIB (RAF KINASE INHIBITOR) [Suspect]
     Dosage: 600 MG, QD (200 MG AM / 400 MG PM)
     Route: 048
     Dates: start: 20110705, end: 20110711
  59. MAGNESIUM OXIDE [Concomitant]
     Indication: CONSTIPATION PROPHYLAXIS
     Dosage: 500 MG, BID
     Route: 048
     Dates: start: 20101130
  60. TRIAMCINOLONE [Concomitant]
     Indication: STOMATITIS
     Dosage: 1ML
     Route: 061
     Dates: start: 20110121, end: 20110309
  61. MEGACE [Concomitant]
     Dosage: 10 ML, QD
     Route: 048
     Dates: start: 20110712, end: 20110718
  62. OPTIRAY 160 [Concomitant]
     Dosage: 100 ML, QD
     Route: 042
     Dates: start: 20110218, end: 20110218
  63. BACTROBAN [Concomitant]
     Indication: EXCORIATION
     Dosage: 10 G, PRN
     Route: 061
     Dates: start: 20110211, end: 20110309
  64. UREA [Concomitant]
     Indication: EXCORIATION
     Dosage: 30 G, PRN
     Route: 061
     Dates: start: 20110404, end: 20110422
  65. GLIMEL [Concomitant]
     Indication: DIABETES MELLITUS
     Dosage: 2 MG, QD
     Route: 048
     Dates: start: 20110830
  66. MEK INHIBITOR (DIHYDROXYPROP-DIFLU-METHOXYPHEN-CYCLOPROPA-SULFAMI) [Suspect]
     Dosage: 50 MG, QD
     Route: 048
     Dates: start: 20110207, end: 20110207
  67. MEK INHIBITOR (DIHYDROXYPROP-DIFLU-METHOXYPHEN-CYCLOPROPA-SULFAMI) [Suspect]
     Dosage: 50 MG, QD
     Route: 048
     Dates: start: 20110217, end: 20110217
  68. MEK INHIBITOR (DIHYDROXYPROP-DIFLU-METHOXYPHEN-CYCLOPROPA-SULFAMI) [Suspect]
     Dosage: 30 MG, BID
     Route: 048
     Dates: start: 20110423, end: 20110511
  69. MEK INHIBITOR (DIHYDROXYPROP-DIFLU-METHOXYPHEN-CYCLOPROPA-SULFAMI) [Suspect]
     Dosage: 30 MG, QD
     Route: 048
     Dates: start: 20110603, end: 20110606
  70. SORAFENIB (RAF KINASE INHIBITOR) [Suspect]
     Indication: HEPATIC NEOPLASM MALIGNANT
     Dosage: 600 MG, QD(200MG AM/400MG PM)
     Route: 048
     Dates: start: 20110107, end: 20110113
  71. SORAFENIB (RAF KINASE INHIBITOR) [Suspect]
     Dosage: 600 MG, QD (200 MGAM/400 MG PM)
     Route: 048
     Dates: start: 20110219, end: 20110309
  72. AMARYL [Concomitant]
     Indication: DIABETES MELLITUS
     Dosage: 1 TAB BID
     Dates: start: 20101023
  73. METOCLOPRAMIDE [Concomitant]
     Dosage: 2.5 MG, TID
     Route: 048
     Dates: start: 20110422, end: 20110622
  74. MEGACE [Concomitant]
     Dosage: 10 ML, QD
     Route: 048
     Dates: start: 20110422, end: 20110428
  75. MEGACE [Concomitant]
     Dosage: 10 ML, QD
     Route: 048
     Dates: start: 20110624, end: 20110630
  76. CONTRAST MEDIA [Concomitant]
     Indication: NUCLEAR MAGNETIC RESONANCE IMAGING
     Dosage: 20 ML, QD
     Route: 042
     Dates: start: 20101224, end: 20101224
  77. CONTRAST MEDIA [Concomitant]
     Dosage: 10 ML, QD
     Route: 042
     Dates: start: 20110401, end: 20110401
  78. LIPID EMULSION [Concomitant]
     Dosage: 250 ML, QD
     Route: 042
     Dates: start: 20110404, end: 20110404
  79. HEPATAMINE [Concomitant]
     Dosage: 500 MG, QD
     Route: 042
     Dates: start: 20110404, end: 20110404
  80. TERBINAFINE HCL [Concomitant]
     Indication: TINEA PEDIS
     Dosage: 15 G, QD
     Route: 061
     Dates: start: 20110512
  81. TROPICAMIDE [Concomitant]
     Indication: MYDRIASIS
     Dosage: 0.8 ML, QD
     Route: 061
     Dates: start: 20110712, end: 20110712
  82. GLUCOBAY [Concomitant]
     Indication: DIABETES MELLITUS
     Dosage: 50 MG, TID
     Route: 048
     Dates: start: 20110919, end: 20110928
  83. MEK INHIBITOR (DIHYDROXYPROP-DIFLU-METHOXYPHEN-CYCLOPROPA-SULFAMI) [Suspect]
     Dosage: 50 MG, QD
     Route: 048
     Dates: start: 20110318, end: 20110318
  84. MEK INHIBITOR (DIHYDROXYPROP-DIFLU-METHOXYPHEN-CYCLOPROPA-SULFAMI) [Suspect]
     Dosage: 50 MG, BID
     Route: 048
     Dates: start: 20110405, end: 20110418
  85. SORAFENIB (RAF KINASE INHIBITOR) [Suspect]
     Dosage: 400 MG, QD (PM)
     Route: 048
     Dates: start: 20110512, end: 20110512
  86. SORAFENIB (RAF KINASE INHIBITOR) [Suspect]
     Dosage: 600 MG, QD (200 MG AM / 400 MG PM)
     Route: 048
     Dates: start: 20110804
  87. ANALGESICS [Concomitant]
     Dosage: 5 MG, PRN
     Route: 048
     Dates: start: 20110826
  88. MYDRIN P [Concomitant]
     Dosage: 1 ML, QD
     Route: 061
     Dates: start: 20110218, end: 20110218
  89. MEGACE [Concomitant]
     Dosage: 10 ML, QD
     Route: 048
     Dates: start: 20110602, end: 20110608
  90. CONTRAST MEDIA [Concomitant]
     Dosage: 10 ML, QD
     Route: 042
     Dates: start: 20110511, end: 20110511
  91. OPTIRAY 160 [Concomitant]
     Dosage: 100 ML, QD
     Route: 042
     Dates: start: 20110512, end: 20110512
  92. OPTIRAY 160 [Concomitant]
     Dosage: 100 ML, QD
     Route: 042
     Dates: start: 20110624, end: 20110624
  93. LIPID EMULSION [Concomitant]
     Indication: DECREASED APPETITE
     Dosage: 250 ML, QD
     Route: 042
     Dates: start: 20110310, end: 20110310
  94. ULTRAVIST 150 [Concomitant]
     Indication: SCAN WITH CONTRAST
     Dosage: 500 ML, QD
     Route: 042
     Dates: start: 20110404, end: 20110404
  95. TRIAMCINOLONE ACETONIDE [Concomitant]
     Indication: RETINAL VASCULAR THROMBOSIS
     Dosage: 40 MG, QD
     Route: 061
     Dates: start: 20110607, end: 20110607
  96. DEXTROSE [Concomitant]
     Indication: FLUID REPLACEMENT
     Dosage: 500 ML, QD
     Route: 042
     Dates: start: 20110826, end: 20110826
  97. MEK INHIBITOR (DIHYDROXYPROP-DIFLU-METHOXYPHEN-CYCLOPROPA-SULFAMI) [Suspect]
     Dosage: 50 MG, QD
     Route: 048
     Dates: start: 20110128, end: 20110128
  98. MEK INHIBITOR (DIHYDROXYPROP-DIFLU-METHOXYPHEN-CYCLOPROPA-SULFAMI) [Suspect]
     Dosage: 50 MG, BID
     Route: 048
     Dates: start: 20110219, end: 20110309
  99. MEK INHIBITOR (DIHYDROXYPROP-DIFLU-METHOXYPHEN-CYCLOPROPA-SULFAMI) [Suspect]
     Dosage: 50 MG, BID
     Route: 048
     Dates: start: 20110420, end: 20110421
  100. MEK INHIBITOR (DIHYDROXYPROP-DIFLU-METHOXYPHEN-CYCLOPROPA-SULFAMI) [Suspect]
     Dosage: 30 MG, BID
     Route: 048
     Dates: start: 20110513, end: 20110528
  101. SORAFENIB (RAF KINASE INHIBITOR) [Suspect]
     Dosage: 600 MG, QD(200MG AM/ 400 MG PM)
     Route: 048
     Dates: start: 20110115, end: 20110120
  102. SORAFENIB (RAF KINASE INHIBITOR) [Suspect]
     Dosage: 600 MG, QD (200 MG AM/400 MG PM)
     Route: 048
     Dates: start: 20110402, end: 20110403
  103. SORAFENIB (RAF KINASE INHIBITOR) [Suspect]
     Dosage: 600 MG, QD (200 MG AM/ 400 MG PM)
     Route: 048
     Dates: start: 20110405, end: 20110418
  104. SORAFENIB (RAF KINASE INHIBITOR) [Suspect]
     Dosage: 600 MG, QD
     Route: 048
     Dates: start: 20110422, end: 20110511
  105. SORAFENIB (RAF KINASE INHIBITOR) [Suspect]
     Dosage: 600 MG, QD(200 MG AM/400 MG PM)
     Route: 048
     Dates: start: 20110513, end: 20110528
  106. ULTRACET [Concomitant]
     Indication: ARTHRALGIA
     Dosage: 1 TAB TID
     Dates: start: 20101015, end: 20110120
  107. MYDRIN P [Concomitant]
     Dosage: 1 ML, QD
     Route: 061
     Dates: start: 20110624, end: 20110624
  108. FESTAL [Concomitant]
     Indication: VOMITING
     Dosage: 1 TAB TID
     Route: 048
     Dates: start: 20110117, end: 20110309
  109. NORVASC [Concomitant]
     Indication: HYPERTENSION
     Dosage: 5 MG, QD
     Route: 048
     Dates: start: 20110207
  110. MEGACE [Concomitant]
     Dosage: 10 ML, QD
     Route: 048
     Dates: start: 20110310, end: 20110316
  111. MEGACE [Concomitant]
     Dosage: 10 ML, QD
     Route: 048
     Dates: start: 20110512, end: 20110518
  112. CONTRAST MEDIA [Concomitant]
     Dosage: 10 ML, QD
     Route: 042
     Dates: start: 20110624, end: 20110624
  113. LACTULOSE [Concomitant]
     Dosage: 20 ML, TID
     Route: 048
     Dates: start: 20110624
  114. FLUORESCINE [Concomitant]
     Indication: ANGIOGRAM RETINA
     Dosage: 500 MG, QD
     Route: 042
     Dates: start: 20110607, end: 20110607

REACTIONS (2)
  - RETINAL VASCULAR THROMBOSIS [None]
  - ARTHRALGIA [None]
